FAERS Safety Report 5205336-2 (Version None)
Quarter: 2006Q4

REPORT INFORMATION
  Report Type: 
  Country: None (occurrence: None)
  Receive Date: 20061027
  Receipt Date: 20051017
  Transmission Date: 20070319
  Serious: Yes (Hospitalization, Disabling, Other)
  Sender: FDA-Public Use
  Company Number: HQWYE112620OCT05

PATIENT
  Age: 56 Year
  Sex: Female
  Weight: 72.64 kg

DRUGS (4)
  1. PREMARIN [Suspect]
     Indication: HYSTERECTOMY
     Dosage: SEE IMAGE
     Route: 048
     Dates: start: 19951201, end: 20021016
  2. PREMARIN [Suspect]
     Indication: HYSTERECTOMY
     Dosage: SEE IMAGE
     Route: 048
     Dates: start: 20021017, end: 20030401
  3. PROZAC [Concomitant]
  4. CLONAZEPAM [Concomitant]

REACTIONS (2)
  - BREAST CANCER [None]
  - WEIGHT INCREASED [None]
